FAERS Safety Report 14187712 (Version 1)
Quarter: 2017Q4

REPORT INFORMATION
  Report Type: Report from Study
  Country: CN (occurrence: CN)
  Receive Date: 20171114
  Receipt Date: 20171114
  Transmission Date: 20180321
  Serious: Yes (Other)
  Sender: FDA-Public Use
  Company Number: CN-JNJFOC-20171105745

PATIENT

DRUGS (2)
  1. SODIUM VALPROATE [Suspect]
     Active Substance: VALPROATE SODIUM
     Indication: EPILEPSY
     Dosage: 10 TO 15 MG/KG/DAY TO THE MAINTENANCE DOSE OF 20 TO 40 MG/KG/DAY
     Route: 065
  2. TOPAMAX [Suspect]
     Active Substance: TOPIRAMATE
     Indication: EPILEPSY
     Dosage: 0.5 TO 1 MG/KG/DAY TO THE MAINTENANCE DOSE OF 4 TO 8 MG/KG/DAY
     Route: 048

REACTIONS (6)
  - Muscular weakness [Unknown]
  - Renal injury [Unknown]
  - Nausea [Unknown]
  - Liver injury [Unknown]
  - Somnolence [Unknown]
  - Vomiting [Unknown]
